FAERS Safety Report 5519813-8 (Version None)
Quarter: 2007Q4

REPORT INFORMATION
  Report Type: 
  Country: None (occurrence: None)
  Receive Date: 20071116
  Receipt Date: 20070828
  Transmission Date: 20080405
  Serious: No
  Sender: FDA-Public Use
  Company Number: A0677008A

PATIENT
  Age: 73 Year
  Sex: Male

DRUGS (8)
  1. COREG CR [Suspect]
     Indication: HYPERTENSION
     Dosage: 20MG PER DAY
     Route: 048
     Dates: start: 20070801
  2. VASOTEC [Concomitant]
  3. AMIODARONE [Concomitant]
  4. COUMADIN [Concomitant]
  5. LIPITOR [Concomitant]
  6. ZETIA [Concomitant]
  7. ASPIRIN [Concomitant]
  8. KLONOPIN [Concomitant]

REACTIONS (1)
  - HYPOTENSION [None]
